FAERS Safety Report 22780636 (Version 3)
Quarter: 2025Q1

REPORT INFORMATION
  Report Type: Spontaneous
  Country: US (occurrence: US)
  Receive Date: 20230803
  Receipt Date: 20250307
  Transmission Date: 20250409
  Serious: Yes (Hospitalization)
  Sender: SANOFI AVENTIS
  Company Number: US-SA-SAC20230801000049

PATIENT
  Age: 69 Year
  Sex: Male

DRUGS (31)
  1. DUPIXENT [Suspect]
     Active Substance: DUPILUMAB
     Indication: Dermatitis atopic
     Dosage: 300 MG, QOW
     Route: 058
     Dates: start: 20220324
  2. ALBUTEROL SULFATE [Concomitant]
     Active Substance: ALBUTEROL SULFATE
  3. AMLODIPINE [Concomitant]
     Active Substance: AMLODIPINE BESYLATE
  4. ATORVASTATIN [Concomitant]
     Active Substance: ATORVASTATIN
  5. AZITHROMYCIN [Concomitant]
     Active Substance: AZITHROMYCIN
  6. CLOBETASOL [Concomitant]
     Active Substance: CLOBETASOL
  7. DIAZEPAM [Concomitant]
     Active Substance: DIAZEPAM
  8. FLUOCINONIDE [Concomitant]
     Active Substance: FLUOCINONIDE
  9. FLUTICASONE [Concomitant]
     Active Substance: FLUTICASONE
  10. HALOBETASOL [Concomitant]
     Active Substance: HALOBETASOL
  11. KENALOG [Concomitant]
     Active Substance: TRIAMCINOLONE ACETONIDE
  12. LISINOPRIL [Concomitant]
     Active Substance: LISINOPRIL
  13. LORATADINE [Concomitant]
     Active Substance: LORATADINE
  14. LOSARTAN POTASSIUM [Concomitant]
     Active Substance: LOSARTAN POTASSIUM
  15. PREDNISONE [Concomitant]
     Active Substance: PREDNISONE
  16. SERTRALINE [Concomitant]
     Active Substance: SERTRALINE HYDROCHLORIDE
  17. SHINGRIX [Concomitant]
     Active Substance: RECOMBINANT VARICELLA ZOSTER VIRUS (VZV) GLYCOPROTEIN E
  18. SILDENAFIL [Concomitant]
     Active Substance: SILDENAFIL
  19. SYMBICORT [Concomitant]
     Active Substance: BUDESONIDE\FORMOTEROL FUMARATE DIHYDRATE
  20. TRIAMCINOLONE [Concomitant]
     Active Substance: TRIAMCINOLONE
  21. BETAMETHASONE DIPROPIONATE [Concomitant]
     Active Substance: BETAMETHASONE DIPROPIONATE
  22. DEXAMETHASONE PHOSPHATE [Concomitant]
     Active Substance: DEXAMETHASONE PHOSPHATE
  23. DIAZEPAM [Concomitant]
     Active Substance: DIAZEPAM
  24. HYDROCORTISONE [Concomitant]
     Active Substance: HYDROCORTISONE
  25. HYDROXYZINE HYDROCHLORIDE [Concomitant]
     Active Substance: HYDROXYZINE HYDROCHLORIDE
  26. LEVOCETIRIZINE [Concomitant]
     Active Substance: LEVOCETIRIZINE
  27. METHYLPREDNISOLONE [Concomitant]
     Active Substance: METHYLPREDNISOLONE
  28. ALBUTEROL [Concomitant]
     Active Substance: ALBUTEROL
  29. CLOBETASOL [Concomitant]
     Active Substance: CLOBETASOL
  30. LOSARTAN POTASSIUM [Concomitant]
     Active Substance: LOSARTAN POTASSIUM
  31. PREDNISONE [Suspect]
     Active Substance: PREDNISONE

REACTIONS (5)
  - Hospitalisation [Unknown]
  - Sleep disorder due to a general medical condition [Unknown]
  - Dermatitis atopic [Not Recovered/Not Resolved]
  - Pruritus [Not Recovered/Not Resolved]
  - Drug ineffective [Unknown]
